FAERS Safety Report 4505171-4 (Version None)
Quarter: 2004Q4

REPORT INFORMATION
  Report Type: 
  Country: None (occurrence: None)
  Receive Date: 20041119
  Receipt Date: 20040909
  Transmission Date: 20050328
  Serious: Yes (Hospitalization)
  Sender: FDA-Public Use
  Company Number: 200419048GDDC

PATIENT
  Age: 58 Year
  Sex: Female

DRUGS (4)
  1. ARAVA [Suspect]
     Indication: RHEUMATOID ARTHRITIS
     Route: 048
     Dates: start: 20000201, end: 20040314
  2. BOSENTAN [Suspect]
     Indication: PULMONARY HYPERTENSION
     Dosage: DOSE: UNK
     Dates: start: 20040301
  3. LASIX [Concomitant]
     Dosage: DOSE: UNK
  4. HYDROXYCHLOROQUINE [Concomitant]
     Dosage: DOSE: UNK

REACTIONS (4)
  - BLOOD PRESSURE DECREASED [None]
  - DRUG INTERACTION [None]
  - DYSPNOEA [None]
  - PULMONARY HYPERTENSION [None]
